FAERS Safety Report 8777923 (Version 1)
Quarter: 2012Q4

REPORT INFORMATION
  Report Type: 
  Country: JP (occurrence: JP)
  Receive Date: 20120912
  Receipt Date: 20120912
  Transmission Date: 20130627
  Serious: Yes (Hospitalization, Other)
  Sender: FDA-Public Use
  Company Number: PHHY2012JP079015

PATIENT
  Sex: Female

DRUGS (8)
  1. RIBAVIRIN [Suspect]
     Indication: VIRAEMIA
     Dosage: 600 mg/ day
     Route: 048
  2. RIBAVIRIN [Suspect]
     Dosage: 400 mg, daily
     Route: 048
  3. TELAPREVIR [Suspect]
     Indication: VIRAEMIA
     Dosage: 2250 mg, daily
  4. TELAPREVIR [Suspect]
     Dosage: 1500 mg/ day
     Route: 048
  5. TELAPREVIR [Suspect]
     Dosage: 750 mg/ day
  6. PEGINTERFERON ALFA-2B [Suspect]
     Dosage: 1.6 ug/kg, QW
  7. LEVOTHYROXINE SODIUM [Concomitant]
  8. NIFEDIPINE [Concomitant]

REACTIONS (4)
  - Rhabdomyolysis [Recovering/Resolving]
  - Musculoskeletal stiffness [Recovering/Resolving]
  - Renal disorder [Recovered/Resolved]
  - Urine output decreased [Recovering/Resolving]
